FAERS Safety Report 10052227 (Version 1)
Quarter: 2014Q2

REPORT INFORMATION
  Report Type: Spontaneous
  Country: US (occurrence: None)
  Receive Date: 20140401
  Receipt Date: 20140401
  Transmission Date: 20141212
  Serious: Yes (Other)
  Sender: FDA-Public Use
  Company Number: None

PATIENT
  Age: 8 Year
  Sex: Female
  Weight: 28.2 kg

DRUGS (5)
  1. CYTARABINE [Suspect]
     Route: 037
  2. DEXAMETHASONE [Suspect]
  3. METHOTREXATE [Suspect]
     Route: 037
  4. ONCASPAR [Suspect]
     Dosage: 2500 IU
  5. VINCRISTINE SULFATE [Suspect]

REACTIONS (10)
  - Anaemia [None]
  - Neutropenia [None]
  - Tachycardia [None]
  - Pyrexia [None]
  - Contusion [None]
  - Decreased appetite [None]
  - Hepatomegaly [None]
  - Platelet count decreased [None]
  - Hypotension [None]
  - Bacterial infection [None]
